FAERS Safety Report 7407961-7 (Version None)
Quarter: 2011Q2

REPORT INFORMATION
  Report Type: 
  Country: None (occurrence: None)
  Receive Date: 20110412
  Receipt Date: 20110407
  Transmission Date: 20111010
  Serious: No
  Sender: FDA-Public Use
  Company Number: US-PFIZER INC-2011077498

PATIENT
  Sex: Female

DRUGS (1)
  1. CHANTIX [Suspect]
     Indication: SMOKING CESSATION THERAPY
     Dosage: UNK
     Route: 048
     Dates: start: 20110201, end: 20110101

REACTIONS (5)
  - LIP BLISTER [None]
  - FLATULENCE [None]
  - LIP DISORDER [None]
  - CHAPPED LIPS [None]
  - HYPERSENSITIVITY [None]
